FAERS Safety Report 6304708-2 (Version None)
Quarter: 2009Q3

REPORT INFORMATION
  Report Type: 
  Country: None (occurrence: None)
  Receive Date: 20090811
  Receipt Date: 20090804
  Transmission Date: 20100115
  Serious: Yes (Hospitalization)
  Sender: FDA-Public Use
  Company Number: A0786508A

PATIENT
  Sex: Female

DRUGS (9)
  1. PAXIL [Suspect]
     Indication: DRUG USE FOR UNKNOWN INDICATION
     Route: 048
  2. PAXIL CR [Suspect]
     Indication: DRUG USE FOR UNKNOWN INDICATION
     Dosage: 37.5MG UNKNOWN
     Route: 048
  3. IMITREX [Suspect]
     Indication: MIGRAINE
     Dosage: 100MG AS REQUIRED
     Route: 048
     Dates: start: 19950101
  4. FLOVENT [Suspect]
     Indication: DRUG USE FOR UNKNOWN INDICATION
     Dosage: 110MCG UNKNOWN
     Route: 055
  5. VENTOLIN [Suspect]
     Indication: DRUG USE FOR UNKNOWN INDICATION
     Route: 065
  6. SYNTHROID [Concomitant]
  7. XANAX [Concomitant]
  8. ROCALTROL [Concomitant]
  9. ALDACTAZIDE [Concomitant]

REACTIONS (2)
  - DRUG INEFFECTIVE [None]
  - STAPHYLOCOCCAL INFECTION [None]
